FAERS Safety Report 8105737 (Version 3)
Quarter: 2013Q3

REPORT INFORMATION
  Report Type: Spontaneous
  Country: US (occurrence: US)
  Receive Date: 20110825
  Receipt Date: 20130909
  Transmission Date: 20140515
  Serious: Yes (Other)
  Sender: FDA-Public Use
  Company Number: US-BAYER-2011-075645

PATIENT
  Age: 25 Year
  Sex: Female
  Weight: 63.49 kg

DRUGS (15)
  1. YASMIN [Suspect]
     Dosage: UNK
     Dates: start: 2006, end: 2009
  2. OCELLA [Suspect]
  3. YAZ [Suspect]
  4. RELPAX [Concomitant]
     Indication: MIGRAINE
     Dosage: 1 AS NEEDED
     Route: 048
     Dates: start: 2006, end: 2009
  5. LEXAPRO [Concomitant]
     Dosage: 10 MG, 1 DAILY
     Route: 048
     Dates: start: 20081219, end: 20090203
  6. HYDROMORPHONE [Concomitant]
     Indication: PAIN
     Dosage: 4 MG, 1 EVERY 4-6 HOURS AS NEEDED
     Route: 048
     Dates: start: 20090216
  7. PENICILLIN VK [Concomitant]
     Dosage: 500 MG, 1 QID
     Route: 048
     Dates: start: 20090216
  8. IBUPROFEN [Concomitant]
     Indication: PAIN
     Dosage: 600 MG, 1 QID
     Dates: start: 20090216
  9. MAXALT [Concomitant]
  10. LORTAB [Concomitant]
  11. PHENERGAN [Concomitant]
  12. PAMELOR [Concomitant]
  13. NORTRIPTYLINE [Concomitant]
  14. METOPROLOL [Concomitant]
  15. CELEBREX [Concomitant]

REACTIONS (2)
  - Thrombosis [None]
  - Injury [None]
